FAERS Safety Report 23822269 (Version 2)
Quarter: 2024Q3

REPORT INFORMATION
  Report Type: Spontaneous
  Country: CA (occurrence: CA)
  Receive Date: 20240506
  Receipt Date: 20240810
  Transmission Date: 20241016
  Serious: Yes (Hospitalization)
  Sender: TEVA
  Company Number: CA-TEVA-VS-3192870

PATIENT
  Age: 46 Year
  Sex: Female

DRUGS (11)
  1. GABAPENTIN [Suspect]
     Active Substance: GABAPENTIN
     Indication: Multiple sclerosis
     Dosage: TIME INTERVAL: 0.33333333 DAYS
     Route: 065
  2. GABAPENTIN [Suspect]
     Active Substance: GABAPENTIN
     Indication: Multiple sclerosis
     Route: 065
  3. BACLOFEN [Suspect]
     Active Substance: BACLOFEN
     Indication: Multiple sclerosis
     Dosage: TIME INTERVAL: 0.33333333 DAYS
     Route: 065
  4. BACLOFEN [Suspect]
     Active Substance: BACLOFEN
     Indication: Multiple sclerosis
     Route: 065
  5. PROPRANOLOL [Concomitant]
     Active Substance: PROPRANOLOL HYDROCHLORIDE
     Indication: Multiple sclerosis
     Route: 065
  6. PROPRANOLOL [Concomitant]
     Active Substance: PROPRANOLOL HYDROCHLORIDE
     Indication: Multiple sclerosis
     Route: 065
  7. TIAGABINE HYDROCHLORIDE [Suspect]
     Active Substance: TIAGABINE HYDROCHLORIDE
     Indication: Multiple sclerosis
     Route: 065
  8. TERIFLUNOMIDE [Suspect]
     Active Substance: TERIFLUNOMIDE
     Indication: Multiple sclerosis
     Route: 065
  9. INTERFERON BETA-1A [Suspect]
     Active Substance: INTERFERON BETA-1A
     Indication: Multiple sclerosis
     Dosage: DOSE FORM: SOLUTION SUBCUTANEOUS
     Route: 065
  10. DALFAMPRIDINE [Concomitant]
     Active Substance: DALFAMPRIDINE
     Indication: Multiple sclerosis
     Route: 065
  11. DALFAMPRIDINE [Concomitant]
     Active Substance: DALFAMPRIDINE
     Indication: Product used for unknown indication
     Dosage: DESCRIPTION: DALFAMPRIDINE EXTENDED RELEASE
     Route: 065

REACTIONS (3)
  - Encephalopathy [Recovering/Resolving]
  - Myoclonus [Recovering/Resolving]
  - Off label use [Recovered/Resolved]
